FAERS Safety Report 7269570-2 (Version None)
Quarter: 2011Q1

REPORT INFORMATION
  Report Type: 
  Country: None (occurrence: None)
  Receive Date: 20110202
  Receipt Date: 20110124
  Transmission Date: 20110831
  Serious: Yes (Hospitalization)
  Sender: FDA-Public Use
  Company Number: GB-PFIZER INC-GB-WYE-G06775810

PATIENT
  Age: 70 Year
  Sex: Female

DRUGS (13)
  1. CYTARABINE [Suspect]
     Dosage: 20.0 MG, 2X/DAY
     Route: 065
     Dates: start: 20100916, end: 20100926
  2. CHLORPHENAMINE [Concomitant]
     Dosage: 4 MG, 4X/DAY
     Route: 065
  3. CIPROFLOXACIN [Concomitant]
     Dosage: 500 MG, 2X/DAY
     Route: 065
  4. ACICLOVIR [Concomitant]
     Dosage: 400 MG, 2X/DAY
     Route: 065
  5. FLUCONAZOLE [Concomitant]
     Dosage: 50 MG, 2X/DAY
     Route: 065
  6. LANSOPRAZOLE [Concomitant]
     Dosage: 30 MG, 1X/DAY
     Route: 065
  7. NYSTATIN [Concomitant]
     Dosage: MOUTHWASH AS REQUIRED
     Route: 048
  8. GEMTUZUMAB OZOGAMICIN [Suspect]
     Indication: ACUTE MYELOID LEUKAEMIA
     Dosage: 5.0 MG, 1X/TOT
     Route: 042
     Dates: start: 20100915, end: 20100915
  9. DOMPERIDONE [Concomitant]
     Dosage: 10 MG, UNK
     Route: 065
  10. LIPITOR [Concomitant]
     Dosage: 20 MG, 1X/DAY
     Route: 065
  11. BENZYDAMINE [Concomitant]
     Dosage: 0.15 UNK, AS NEEDED
     Route: 065
  12. LISINOPRIL [Concomitant]
     Dosage: 20 MG, 1X/DAY
     Route: 065
  13. SENNA [Concomitant]
     Dosage: 75 MG, 1X PER 1 PRN
     Route: 065

REACTIONS (3)
  - ISCHAEMIC STROKE [None]
  - THALAMIC INFARCTION [None]
  - EPILEPSY [None]
